FAERS Safety Report 7642275-1 (Version None)
Quarter: 2011Q3

REPORT INFORMATION
  Report Type: 
  Country: None (occurrence: None)
  Receive Date: 20110722
  Receipt Date: 20110707
  Transmission Date: 20111222
  Serious: Yes (Death, Hospitalization)
  Sender: FDA-Public Use
  Company Number: AUR-APL-2011-04167

PATIENT
  Age: 36 Year
  Sex: Female

DRUGS (4)
  1. BUPROPION HCL [Suspect]
     Indication: PRODUCT USED FOR UNKNOWN INDICATION
     Dosage: (21 DOSAGE FORMS), ORAL
     Route: 048
     Dates: start: 20080101
  2. CYCLOBENZAPRINE [Suspect]
     Indication: PRODUCT USED FOR UNKNOWN INDICATION
     Dosage: (21 DOSAGE FORMS), ORAL
     Route: 048
     Dates: start: 20080101
  3. SERTRALINE HYDROCHLORIDE [Suspect]
     Indication: PRODUCT USED FOR UNKNOWN INDICATION
     Dosage: (21 DOSAGE FORMS), ORAL
     Route: 048
     Dates: start: 20080101
  4. COCAINE (COCAINE) [Suspect]
     Indication: PRODUCT USED FOR UNKNOWN INDICATION
     Dosage: ORAL
     Route: 048
     Dates: start: 20080101

REACTIONS (12)
  - TOXICITY TO VARIOUS AGENTS [None]
  - BLOOD CREATINE PHOSPHOKINASE INCREASED [None]
  - AGGRESSION [None]
  - CARDIAC ARREST [None]
  - BLOOD GLUCOSE DECREASED [None]
  - MEDICATION RESIDUE [None]
  - TREMOR [None]
  - CONVULSION [None]
  - INCORRECT DOSE ADMINISTERED [None]
  - HEART RATE INCREASED [None]
  - AGITATION [None]
  - SOMNOLENCE [None]
